FAERS Safety Report 7544491 (Version 4)
Quarter: 2013Q2

REPORT INFORMATION
  Report Type: Report from Study
  Country: ZA (occurrence: ZA)
  Receive Date: 20100817
  Receipt Date: 20130524
  Transmission Date: 20140414
  Serious: Yes (Death, Hospitalization, Other)
  Sender: FDA-Public Use
  Company Number: PHHO2010ZA12200

PATIENT
  Age: 76 Year
  Sex: Female

DRUGS (1)
  1. EVEROLIMUS [Suspect]
     Indication: METASTATIC RENAL CELL CARCINOMA
     Dosage: 10 MG, QD
     Route: 048
     Dates: start: 20100610, end: 20100809

REACTIONS (4)
  - Death [Fatal]
  - Dehydration [Recovered/Resolved]
  - Blood potassium increased [Unknown]
  - Blood urea increased [Unknown]
